FAERS Safety Report 10243521 (Version 1)
Quarter: 2014Q2

REPORT INFORMATION
  Report Type: Spontaneous
  Country: TR (occurrence: None)
  Receive Date: 20140616
  Receipt Date: 20140616
  Transmission Date: 20141212
  Serious: Yes (Hospitalization)
  Sender: FDA-Public Use
  Company Number: FK201402325

PATIENT
  Age: 60 Year
  Sex: Female

DRUGS (2)
  1. METHOTREXATE (MANUFACTURER UNKNOWN) (METHOTREXATE) (METHOTREXATE) [Suspect]
     Indication: RHEUMATOID ARTHRITIS
  2. NAPROXEN (NAPROXEN) [Concomitant]

REACTIONS (14)
  - Medication error [None]
  - Pancytopenia [None]
  - Febrile neutropenia [None]
  - Diarrhoea [None]
  - Fatigue [None]
  - Pyrexia [None]
  - Haematuria [None]
  - Stomatitis [None]
  - Renal failure [None]
  - Aplastic anaemia [None]
  - Pseudomonas test positive [None]
  - Culture urine positive [None]
  - Blood culture positive [None]
  - Accidental exposure to product [None]
